FAERS Safety Report 14737586 (Version 1)
Quarter: 2018Q2

REPORT INFORMATION
  Report Type: Spontaneous
  Country: HU (occurrence: HU)
  Receive Date: 20180409
  Receipt Date: 20180409
  Transmission Date: 20180711
  Serious: Yes (Death)
  Sender: FDA-Public Use
  Company Number: HU-PFIZER INC-2018140998

PATIENT
  Age: 60 Year
  Sex: Female

DRUGS (1)
  1. IBRANCE [Suspect]
     Active Substance: PALBOCICLIB
     Indication: BREAST CANCER METASTATIC
     Dosage: 125 MG, 1X/DAY, ACCORDING TO 3/1 DOSING SCHEMA (21 DAY EVERY DAY WHICH IS FOLLOWED BY 7 DAYS BREAK)
     Route: 048
     Dates: start: 20180307, end: 20180328

REACTIONS (1)
  - Death [Fatal]
